FAERS Safety Report 20144310 (Version 1)
Quarter: 2021Q4

REPORT INFORMATION
  Report Type: Spontaneous
  Country: GB (occurrence: US)
  Receive Date: 20211203
  Receipt Date: 20211203
  Transmission Date: 20220303
  Serious: Yes (Other)
  Sender: FDA-Public Use
  Company Number: GB-ELI_LILLY_AND_COMPANY-US202111004835

PATIENT
  Age: 50 Year
  Sex: Male

DRUGS (2)
  1. TADALAFIL [Suspect]
     Active Substance: TADALAFIL
     Indication: Erectile dysfunction
     Dosage: 10 MILLIGRAM, ONCE A DAY
     Route: 065
     Dates: start: 2021
  2. TADALAFIL [Suspect]
     Active Substance: TADALAFIL
     Dosage: 5 MILLIGRAM, ONCE A DAY
     Route: 065
     Dates: start: 2021

REACTIONS (4)
  - Renal failure [Unknown]
  - Myocardial infarction [Unknown]
  - Erectile dysfunction [Unknown]
  - Drug ineffective [Unknown]

NARRATIVE: CASE EVENT DATE: 20210401
